FAERS Safety Report 18222955 (Version 1)
Quarter: 2020Q3

REPORT INFORMATION
  Report Type: Report from Study
  Country: RU (occurrence: RU)
  Receive Date: 20200902
  Receipt Date: 20200902
  Transmission Date: 20201103
  Serious: Yes (Other)
  Sender: FDA-Public Use
  Company Number: RU-JNJFOC-20200836604

PATIENT
  Age: 30 Year
  Sex: Male

DRUGS (3)
  1. TREVICTA [Suspect]
     Active Substance: PALIPERIDONE PALMITATE
     Indication: PRODUCT USED FOR UNKNOWN INDICATION
     Route: 065
  2. TREVICTA [Suspect]
     Active Substance: PALIPERIDONE PALMITATE
  3. TREVICTA [Suspect]
     Active Substance: PALIPERIDONE PALMITATE

REACTIONS (2)
  - Aggression [Recovered/Resolved]
  - Hallucination [Recovered/Resolved]
